FAERS Safety Report 18031554 (Version 4)
Quarter: 2022Q4

REPORT INFORMATION
  Report Type: Spontaneous
  Country: US (occurrence: US)
  Receive Date: 20200716
  Receipt Date: 20221011
  Transmission Date: 20230113
  Serious: No
  Sender: FDA-Public Use
  Company Number: US-PFIZER INC-2020271802

PATIENT
  Age: 60 Year
  Sex: Female

DRUGS (2)
  1. XELJANZ XR [Suspect]
     Active Substance: TOFACITINIB CITRATE
     Indication: Rheumatoid arthritis
     Dosage: 11 MG, 1X/DAY
     Route: 048
     Dates: start: 20200713, end: 2021
  2. XELJANZ XR [Suspect]
     Active Substance: TOFACITINIB CITRATE
     Dosage: 11 MG, DAILY
     Route: 048
     Dates: start: 202109

REACTIONS (11)
  - Product dose omission issue [Unknown]
  - Epicondylitis [Unknown]
  - Arthralgia [Unknown]
  - Respiratory disorder [Unknown]
  - Feeling abnormal [Unknown]
  - Herpes zoster [Unknown]
  - Neuralgia [Unknown]
  - Anxiety [Unknown]
  - Urticaria [Unknown]
  - Stress [Unknown]
  - Gastrooesophageal reflux disease [Unknown]

NARRATIVE: CASE EVENT DATE: 20210501
